FAERS Safety Report 5625266-1 (Version None)
Quarter: 2008Q1

REPORT INFORMATION
  Report Type: 
  Country: None (occurrence: None)
  Receive Date: 20080208
  Receipt Date: 20080122
  Transmission Date: 20080703
  Serious: Yes (Other)
  Sender: FDA-Public Use
  Company Number: ENTC2008-0018

PATIENT
  Age: 83 Year
  Sex: Female

DRUGS (5)
  1. STALEVO 100 [Suspect]
     Indication: PARKINSON'S DISEASE
     Dosage: 350/87,5/600MG ORAL
     Route: 048
     Dates: start: 20070801
  2. MODOPAR [Concomitant]
  3. INDAPAMIDE [Concomitant]
  4. COZAAR [Concomitant]
  5. IKOREL [Concomitant]

REACTIONS (2)
  - OEDEMA PERIPHERAL [None]
  - THROMBOSIS [None]
